FAERS Safety Report 21829778 (Version 3)
Quarter: 2023Q2

REPORT INFORMATION
  Report Type: Report from Study
  Country: CO (occurrence: CO)
  Receive Date: 20230106
  Receipt Date: 20230615
  Transmission Date: 20230721
  Serious: Yes (Other)
  Sender: FDA-Public Use
  Company Number: CO-TAKEDA-2022TUS096366

PATIENT
  Age: 59 Year
  Sex: Male
  Weight: 55 kg

DRUGS (1)
  1. VEDOLIZUMAB [Suspect]
     Active Substance: VEDOLIZUMAB
     Indication: Crohn^s disease
     Dosage: 300 MILLIGRAM
     Route: 042
     Dates: start: 20221207

REACTIONS (19)
  - Anal fistula [Unknown]
  - Rectal haemorrhage [Unknown]
  - Dry mouth [Recovering/Resolving]
  - Mouth ulceration [Recovering/Resolving]
  - Asthenia [Recovering/Resolving]
  - Oral mucosal eruption [Not Recovered/Not Resolved]
  - Stomatitis [Unknown]
  - Glossodynia [Unknown]
  - Wound [Unknown]
  - Pain [Unknown]
  - Diarrhoea [Unknown]
  - Abdominal pain upper [Unknown]
  - Gastritis [Unknown]
  - Gastrointestinal inflammation [Unknown]
  - Frequent bowel movements [Unknown]
  - Weight decreased [Unknown]
  - Abdominal pain [Recovering/Resolving]
  - Rash [Recovering/Resolving]
  - Fatigue [Recovering/Resolving]

NARRATIVE: CASE EVENT DATE: 20221207
